FAERS Safety Report 7005413-X (Version None)
Quarter: 2010Q3

REPORT INFORMATION
  Report Type: 
  Country: None (occurrence: None)
  Receive Date: 20100920
  Receipt Date: 20100920
  Transmission Date: 20110219
  Serious: No
  Sender: FDA-Public Use
  Company Number: None

PATIENT
  Sex: Male
  Weight: 118 kg

DRUGS (10)
  1. NITROFURANTOIN [Suspect]
     Indication: PROPHYLAXIS URINARY TRACT INFECTION
     Dosage: 100 MG DAILY PO
     Route: 048
     Dates: start: 20090101, end: 20100202
  2. SULAR [Concomitant]
  3. AVODART [Concomitant]
  4. PROTONIX [Concomitant]
  5. ZOCOR [Concomitant]
  6. ATARAX [Concomitant]
  7. LASIX [Concomitant]
  8. CARDURA [Concomitant]
  9. XOPENEX [Concomitant]
  10. ZAROXOLYN [Concomitant]

REACTIONS (3)
  - CREPITATIONS [None]
  - LUNG INFILTRATION [None]
  - PULMONARY FIBROSIS [None]
